FAERS Safety Report 13770069 (Version 1)
Quarter: 2017Q3

REPORT INFORMATION
  Report Type: Spontaneous
  Country: US (occurrence: US)
  Receive Date: 20170719
  Receipt Date: 20170719
  Transmission Date: 20171127
  Serious: Yes (Hospitalization)
  Sender: FDA-Public Use
  Company Number: None

PATIENT
  Age: 69 Year
  Sex: Female

DRUGS (1)
  1. LONSURF [Suspect]
     Active Substance: TIPIRACIL HYDROCHLORIDE\TRIFLURIDINE
     Indication: COLON CANCER
     Dosage: 20-8.19 MG TAKE 3 TA PO
     Route: 048
     Dates: start: 20170525

REACTIONS (5)
  - Diarrhoea [None]
  - Dehydration [None]
  - Fungal infection [None]
  - Device related infection [None]
  - White blood cell count decreased [None]

NARRATIVE: CASE EVENT DATE: 20170708
